FAERS Safety Report 4980780-7 (Version None)
Quarter: 2006Q2

REPORT INFORMATION
  Report Type: 
  Country: None (occurrence: None)
  Receive Date: 20060418
  Receipt Date: 20060411
  Transmission Date: 20061013
  Serious: Yes (Life-Threatening)
  Sender: FDA-Public Use
  Company Number: 223674

PATIENT
  Age: 57 Year
  Sex: Female
  Weight: 124.7 kg

DRUGS (10)
  1. XOLAIR [Suspect]
     Indication: ASTHMA
     Dosage: 300 MG
     Dates: start: 20040707
  2. ADVAIR DISKUS 100/50 [Concomitant]
  3. PREDNISONE TAB [Concomitant]
  4. CLARINEX [Concomitant]
  5. PREVACID [Concomitant]
  6. FOSAMAX [Concomitant]
  7. ASPIRIN [Concomitant]
  8. ACCOLATE [Concomitant]
  9. BEXTRA [Concomitant]
  10. VITAMIN (VITAMINS NOS) [Concomitant]

REACTIONS (4)
  - ANAPHYLACTIC REACTION [None]
  - BLOOD PRESSURE DIASTOLIC INCREASED [None]
  - HYPERSENSITIVITY [None]
  - RESPIRATORY RATE INCREASED [None]
